FAERS Safety Report 8445320-9 (Version None)
Quarter: 2012Q2

REPORT INFORMATION
  Report Type: 
  Country: None (occurrence: None)
  Receive Date: 20120618
  Receipt Date: 20120608
  Transmission Date: 20120825
  Serious: Yes (Other)
  Sender: FDA-Public Use
  Company Number: US-ASTRAZENECA-2012SE38612

PATIENT
  Age: 60 Year
  Sex: Female
  Weight: 127 kg

DRUGS (12)
  1. JANUVIA [Concomitant]
     Indication: DIABETES MELLITUS
  2. LASIX [Concomitant]
  3. EFFIXER [Concomitant]
     Indication: BIPOLAR DISORDER
  4. LAMICTAL [Concomitant]
     Indication: BIPOLAR DISORDER
  5. SEROQUEL XR [Suspect]
     Indication: BIPOLAR DISORDER
     Route: 048
  6. PRINIVAL [Concomitant]
     Indication: HYPERTENSION
  7. NEXIUM [Suspect]
     Indication: GASTROOESOPHAGEAL REFLUX DISEASE
     Route: 048
  8. SYNTHROID [Concomitant]
     Indication: HYPOTHYROIDISM
  9. LIPITOR [Concomitant]
     Indication: BLOOD CHOLESTEROL INCREASED
  10. CATAPRES [Concomitant]
     Indication: HYPERTENSION
  11. ATIVAN [Concomitant]
     Indication: BIPOLAR DISORDER
  12. TYLENOL W/ CODEINE NO. 4 [Concomitant]

REACTIONS (3)
  - CATARACT [None]
  - SOCIAL AVOIDANT BEHAVIOUR [None]
  - EMOTIONAL DISTRESS [None]
